FAERS Safety Report 10063036 (Version 1)
Quarter: 2014Q1

REPORT INFORMATION
  Report Type: Spontaneous
  Country: US (occurrence: None)
  Receive Date: 20140327
  Receipt Date: 20140327
  Transmission Date: 20141002
  Serious: Yes (Other)
  Sender: FDA-Public Use
  Company Number: IMP_06883_2013

PATIENT
  Age: 16 Year
  Sex: Female

DRUGS (5)
  1. BUPROPION HYDROCHLORIDE [Suspect]
     Indication: DEPRESSION
     Route: 048
     Dates: start: 201310
  2. QYSMIA [Suspect]
     Indication: PRODUCT USED FOR UNKNOWN INDICATION
     Dosage: (3.75MG/23MG)
     Route: 048
     Dates: start: 20131004, end: 20131017
  3. FLUOXETINE HYDROCHLORIDE [Concomitant]
  4. MESALAZINE [Concomitant]
  5. VITAMIN D [Suspect]

REACTIONS (1)
  - Convulsion [None]
